FAERS Safety Report 9885632 (Version 1)
Quarter: 2014Q1

REPORT INFORMATION
  Report Type: Spontaneous
  Country: US (occurrence: US)
  Receive Date: 20140210
  Receipt Date: 20140210
  Transmission Date: 20141002
  Serious: No
  Sender: FDA-Public Use
  Company Number: US-GILEAD-2012-0052977

PATIENT
  Age: 50 Year
  Sex: Female

DRUGS (2)
  1. VIREAD [Suspect]
     Indication: HEPATITIS B
     Dosage: 300 MG, QD
     Route: 048
     Dates: start: 201108
  2. ADEFOVIR DIPIVOXIL [Suspect]
     Dosage: UNK
     Dates: end: 201108

REACTIONS (6)
  - Arthralgia [Not Recovered/Not Resolved]
  - Blood phosphorus decreased [Not Recovered/Not Resolved]
  - Blood alkaline phosphatase increased [Not Recovered/Not Resolved]
  - Glucose urine present [Not Recovered/Not Resolved]
  - pH urine increased [Not Recovered/Not Resolved]
  - Rash [Not Recovered/Not Resolved]
